FAERS Safety Report 25627491 (Version 1)
Quarter: 2025Q3

REPORT INFORMATION
  Report Type: Spontaneous
  Country: US (occurrence: US)
  Receive Date: 20250731
  Receipt Date: 20250731
  Transmission Date: 20251021
  Serious: Yes (Other)
  Sender: SANOFI AVENTIS
  Company Number: US-SA-2025SA219309

PATIENT
  Sex: Female

DRUGS (40)
  1. DUPIXENT [Suspect]
     Active Substance: DUPILUMAB
     Indication: Dermatitis atopic
     Dosage: 300 MG, QOW
     Route: 058
  2. HYDROXYZINE [Concomitant]
     Active Substance: HYDROXYZINE HYDROCHLORIDE
  3. ALBUTEROL SULFATE [Concomitant]
     Active Substance: ALBUTEROL SULFATE
  4. ATORVASTATIN [Concomitant]
     Active Substance: ATORVASTATIN
  5. DIETARY SUPPLEMENT [Concomitant]
     Active Substance: DIETARY SUPPLEMENT
  6. BACLOFEN [Concomitant]
     Active Substance: BACLOFEN
  7. CARAFATE [Concomitant]
     Active Substance: SUCRALFATE
  8. DOCUSATE SODIUM [Concomitant]
     Active Substance: DOCUSATE SODIUM
  9. DULOXETINE HYDROCHLORIDE [Concomitant]
     Active Substance: DULOXETINE HYDROCHLORIDE
  10. MAGNESIUM OXIDE [Concomitant]
     Active Substance: MAGNESIUM OXIDE
  11. TRELEGY ELLIPTA [Concomitant]
     Active Substance: FLUTICASONE FUROATE\UMECLIDINIUM BROMIDE\VILANTEROL TRIFENATATE
  12. .ALPHA.-TOCOPHEROL [Concomitant]
     Active Substance: .ALPHA.-TOCOPHEROL
  13. WARFARIN SODIUM [Concomitant]
     Active Substance: WARFARIN SODIUM
  14. ENTRESTO [Concomitant]
     Active Substance: SACUBITRIL\VALSARTAN
  15. FAMOTIDINE [Concomitant]
     Active Substance: FAMOTIDINE
  16. FUROSEMIDE [Concomitant]
     Active Substance: FUROSEMIDE
  17. GABAPENTIN [Concomitant]
     Active Substance: GABAPENTIN
  18. GLUCOSAMINE [Concomitant]
     Active Substance: GLUCOSAMINE
  19. JARDIANCE [Concomitant]
     Active Substance: EMPAGLIFLOZIN
  20. KETOCONAZOLE [Concomitant]
     Active Substance: KETOCONAZOLE
  21. KETOCONAZOLE [Concomitant]
     Active Substance: KETOCONAZOLE
  22. LATANOPROST [Concomitant]
     Active Substance: LATANOPROST
  23. LEVETIRACETAM [Concomitant]
     Active Substance: LEVETIRACETAM
  24. MELATONIN [Concomitant]
     Active Substance: MELATONIN
  25. MIRALAX [Concomitant]
     Active Substance: POLYETHYLENE GLYCOL 3350
  26. MONTELUKAST [Concomitant]
     Active Substance: MONTELUKAST
  27. NAPROXEN [Concomitant]
     Active Substance: NAPROXEN
  28. NITROSTAT [Concomitant]
     Active Substance: NITROGLYCERIN
  29. NOVOLOG MIX 70/30 [Concomitant]
     Active Substance: INSULIN ASPART
  30. PANTOPRAZOLE [Concomitant]
     Active Substance: PANTOPRAZOLE
  31. RANOLAZINE [Concomitant]
     Active Substance: RANOLAZINE
  32. RISPERIDONE [Concomitant]
     Active Substance: RISPERIDONE
  33. SPIRONOLACTONE [Concomitant]
     Active Substance: SPIRONOLACTONE
  34. TYLENOL 8HR [Concomitant]
     Active Substance: ACETAMINOPHEN
  35. TYLENOL PM EXTRA STRENGTH [Concomitant]
     Active Substance: ACETAMINOPHEN\DIPHENHYDRAMINE HYDROCHLORIDE
  36. VITAMIN D3 [Concomitant]
     Active Substance: CHOLECALCIFEROL
  37. XYZAL ALLERGY 24HR [Concomitant]
     Active Substance: LEVOCETIRIZINE DIHYDROCHLORIDE
  38. CLOBETASOL PROPIONATE [Concomitant]
     Active Substance: CLOBETASOL PROPIONATE
  39. DOXYCYCLINE [Concomitant]
     Active Substance: DOXYCYCLINE
  40. AMLODIPINE BESYLATE [Concomitant]
     Active Substance: AMLODIPINE BESYLATE

REACTIONS (1)
  - Pneumonia viral [Not Recovered/Not Resolved]
